FAERS Safety Report 6832848-8 (Version None)
Quarter: 2010Q3

REPORT INFORMATION
  Report Type: 
  Country: None (occurrence: None)
  Receive Date: 20100712
  Receipt Date: 20070324
  Transmission Date: 20110219
  Serious: No
  Sender: FDA-Public Use
  Company Number: US-PFIZER INC-2007023721

PATIENT
  Sex: Female
  Weight: 70.31 kg

DRUGS (7)
  1. CHANTIX [Suspect]
     Indication: SMOKING CESSATION THERAPY
     Dates: start: 20070301
  2. CELEXA [Concomitant]
  3. CLARITIN [Concomitant]
  4. SUDAFED 12 HOUR [Concomitant]
  5. LESCOL [Concomitant]
  6. ALL OTHER THERAPEUTIC PRODUCTS [Concomitant]
  7. ADVAIR DISKUS 100/50 [Concomitant]

REACTIONS (1)
  - DIARRHOEA [None]
